FAERS Safety Report 5101935-7 (Version None)
Quarter: 2006Q3

REPORT INFORMATION
  Report Type: 
  Country: None (occurrence: None)
  Receive Date: 20060907
  Receipt Date: 20060823
  Transmission Date: 20061208
  Serious: Yes (Hospitalization)
  Sender: FDA-Public Use
  Company Number: 2006PV019986

PATIENT
  Age: 79 Year
  Sex: Female
  Weight: 109.3169 kg

DRUGS (6)
  1. BYETTA [Suspect]
     Indication: DIABETES MELLITUS NON-INSULIN-DEPENDENT
     Dosage: 5 MCG; BID; SC
     Route: 058
     Dates: start: 20041005, end: 20051124
  2. GLYSET [Concomitant]
  3. GLIPIZIDE [Concomitant]
  4. LEVOTHYROXINE SODIUM [Concomitant]
  5. LIPITOR [Concomitant]
  6. ANTIHYPERTENSIVES [Concomitant]

REACTIONS (8)
  - AMNESIA [None]
  - BLOOD GLUCOSE INCREASED [None]
  - CONVULSION [None]
  - NAUSEA [None]
  - PHOTOPSIA [None]
  - STOMACH DISCOMFORT [None]
  - VOMITING [None]
  - WEIGHT DECREASED [None]
